FAERS Safety Report 22226127 (Version 1)
Quarter: 2023Q2

REPORT INFORMATION
  Report Type: Spontaneous
  Country: BR (occurrence: BR)
  Receive Date: 20230419
  Receipt Date: 20230419
  Transmission Date: 20230722
  Serious: Yes (Death, Hospitalization)
  Sender: FDA-Public Use
  Company Number: BR-STRIDES ARCOLAB LIMITED-2023SP005509

PATIENT
  Age: 57 Year
  Sex: Male

DRUGS (4)
  1. PREDNISOLONE [Suspect]
     Active Substance: PREDNISOLONE
     Indication: Pemphigus
     Dosage: 80 MILLIGRAM PER DAY
     Route: 065
     Dates: start: 202003
  2. MYCOPHENOLATE MOFETIL [Suspect]
     Active Substance: MYCOPHENOLATE MOFETIL
     Indication: Pemphigus
     Dosage: 3 GRAM PER DAY
     Route: 065
     Dates: start: 202003
  3. METHYLPREDNISOLONE [Suspect]
     Active Substance: METHYLPREDNISOLONE
     Indication: Pemphigus
     Dosage: 80 MILLIGRAM, DAILY
     Route: 065
     Dates: start: 202003
  4. OXACILLIN [Concomitant]
     Active Substance: OXACILLIN SODIUM
     Indication: Pemphigus
     Dosage: 1 GRAM, ADMINISTERED 4/4 H
     Route: 065
     Dates: start: 202003

REACTIONS (3)
  - COVID-19 [Fatal]
  - Eczema herpeticum [Unknown]
  - Off label use [Unknown]

NARRATIVE: CASE EVENT DATE: 20200301
